FAERS Safety Report 8349369-6 (Version None)
Quarter: 2012Q2

REPORT INFORMATION
  Report Type: 
  Country: None (occurrence: None)
  Receive Date: 20120510
  Receipt Date: 20120430
  Transmission Date: 20120825
  Serious: Yes (Other)
  Sender: FDA-Public Use
  Company Number: FR-SANOFI-AVENTIS-2012SA030306

PATIENT
  Age: 79 Year
  Sex: Male

DRUGS (10)
  1. OXALIPLATIN [Suspect]
     Indication: PANCREATIC CARCINOMA METASTATIC
     Dosage: 12 COURSES
     Route: 065
     Dates: start: 20090101
  2. OXALIPLATIN [Suspect]
     Dosage: 12 COURSES
     Route: 065
     Dates: end: 20091201
  3. FLUOROURACIL [Suspect]
     Indication: PANCREATIC CARCINOMA METASTATIC
     Dosage: 12 COURSES
     Route: 065
     Dates: start: 20090101, end: 20091201
  4. PREDNISONE TAB [Concomitant]
     Dates: start: 20090101, end: 20090101
  5. LEUCOVORIN CALCIUM [Suspect]
     Dosage: 12 CYCLES
     Route: 065
     Dates: start: 20100701, end: 20101201
  6. GEMCITABINE [Concomitant]
     Indication: PANCREATIC CARCINOMA METASTATIC
     Dates: start: 20090101
  7. FLUOROURACIL [Suspect]
     Dosage: 12 COURSES
     Route: 065
     Dates: start: 20100701, end: 20101201
  8. OXALIPLATIN [Suspect]
     Dosage: 12 CYCLES
     Route: 065
     Dates: start: 20100701, end: 20101201
  9. LEUCOVORIN CALCIUM [Suspect]
     Indication: PANCREATIC CARCINOMA METASTATIC
     Dosage: 12 CYCLES
     Route: 065
     Dates: start: 20090101, end: 20091201
  10. PREDNISONE TAB [Concomitant]
     Indication: PANCREATIC CARCINOMA METASTATIC
     Dosage: SYSTEMIC
     Dates: start: 20090101, end: 20090101

REACTIONS (1)
  - NEUROTOXICITY [None]
